FAERS Safety Report 4789549-X (Version None)
Quarter: 2005Q4

REPORT INFORMATION
  Report Type: 
  Country: None (occurrence: None)
  Receive Date: 20051006
  Receipt Date: 20050926
  Transmission Date: 20060501
  Serious: Yes (Other)
  Sender: FDA-Public Use
  Company Number: 2005UW14866

PATIENT
  Age: 51 Year
  Sex: Female
  Weight: 49.1 kg

DRUGS (1)
  1. CRESTOR [Suspect]
     Indication: BLOOD CHOLESTEROL INCREASED
     Route: 048
     Dates: start: 20050101, end: 20050801

REACTIONS (3)
  - DEAFNESS [None]
  - TINNITUS [None]
  - VERTIGO [None]
